FAERS Safety Report 5801295-X (Version None)
Quarter: 2008Q3

REPORT INFORMATION
  Report Type: 
  Country: None (occurrence: None)
  Receive Date: 20080707
  Receipt Date: 20080624
  Transmission Date: 20090109
  Serious: Yes (Hospitalization)
  Sender: FDA-Public Use
  Company Number: FR-JNJFOC-20080605575

PATIENT
  Age: 82 Year
  Sex: Female

DRUGS (9)
  1. OFLOCET [Suspect]
     Indication: INFECTION PROPHYLAXIS
     Route: 048
  2. MEDIATENSYL [Concomitant]
     Route: 065
  3. STAGID [Concomitant]
     Route: 065
  4. SURBRONC [Concomitant]
     Route: 065
  5. LIPANTHYL [Concomitant]
     Route: 065
  6. SYMBICORT [Concomitant]
     Route: 065
  7. DESLORATADINE [Concomitant]
     Indication: ASTHMA
     Route: 065
  8. LOVENOX [Concomitant]
     Indication: PROPHYLAXIS
     Route: 065
  9. BETNEVAL [Concomitant]
     Route: 065

REACTIONS (2)
  - RASH ERYTHEMATOUS [None]
  - SHOCK [None]
